FAERS Safety Report 19985830 (Version 3)
Quarter: 2021Q4

REPORT INFORMATION
  Report Type: Other
  Country: US (occurrence: None)
  Receive Date: 20211022
  Receipt Date: 20211111
  Transmission Date: 20220303
  Serious: No
  Sender: FDA-Public Use
  Company Number: US-ROCHE-2937793

PATIENT
  Sex: Female
  Weight: 72.640 kg

DRUGS (1)
  1. OCREVUS [Suspect]
     Active Substance: OCRELIZUMAB
     Indication: Multiple sclerosis
     Dosage: DATE OF TREATMENT: 16/DEC/2019, 30DEC/2019, 20/JUL/2020, 20/FEB/2021 AND 20/AUG2021.
     Route: 065

REACTIONS (1)
  - COVID-19 [Recovering/Resolving]
